FAERS Safety Report 20524200 (Version 1)
Quarter: 2022Q1

REPORT INFORMATION
  Report Type: Spontaneous
  Country: CN (occurrence: CN)
  Receive Date: 20220228
  Receipt Date: 20220228
  Transmission Date: 20220423
  Serious: Yes (Other)
  Sender: FDA-Public Use
  Company Number: CN-LUPIN PHARMACEUTICALS INC.-2022-02319

PATIENT
  Age: 26 Year
  Sex: Male

DRUGS (5)
  1. FLUOXETINE [Suspect]
     Active Substance: FLUOXETINE HYDROCHLORIDE
     Indication: Major depression
     Dosage: UNK,10 YEARS
     Route: 065
  2. MIANSERIN [Suspect]
     Active Substance: MIANSERIN
     Indication: Major depression
     Dosage: UNK,
     Route: 065
  3. ESKETAMINE [Concomitant]
     Active Substance: ESKETAMINE
     Indication: Major depression
     Dosage: 0.4 MILLIGRAM/KILOGRAM, 6 TIMES; OVER 40 MINUTES EVERY OTHER DAY
     Route: 042
  4. ESKETAMINE [Concomitant]
     Active Substance: ESKETAMINE
     Dosage: 0.4 MILLIGRAM/KILOGRAM, 6 TIMES, OVER 40MINUTES ONE TIME PER DAY
     Route: 042
  5. ESKETAMINE [Concomitant]
     Active Substance: ESKETAMINE
     Indication: Major depression
     Dosage: UNK, ONE TIME
     Route: 045
     Dates: start: 202003

REACTIONS (1)
  - Drug ineffective [Unknown]
